FAERS Safety Report 18087267 (Version 1)
Quarter: 2020Q3

REPORT INFORMATION
  Report Type: Spontaneous
  Country: US (occurrence: US)
  Receive Date: 20200729
  Receipt Date: 20200729
  Transmission Date: 20201103
  Serious: Yes (Death)
  Sender: FDA-Public Use
  Company Number: None

PATIENT
  Age: 41 Year
  Sex: Female
  Weight: 88 kg

DRUGS (23)
  1. ALBUMIN 25% [Concomitant]
     Active Substance: ALBUMIN HUMAN
     Dates: start: 20200719, end: 20200720
  2. CHOLECALCIFEROL 5000 UNIT TABLET [Concomitant]
     Dates: start: 20200711, end: 20200720
  3. REMDESIVIR. [Suspect]
     Active Substance: REMDESIVIR
     Dates: start: 20200719, end: 20200720
  4. ACETAMINOPHEN 500MG TABLET [Concomitant]
     Dates: start: 20200710, end: 20200710
  5. PROPOFOL. [Concomitant]
     Active Substance: PROPOFOL
     Dates: start: 20200718, end: 20200720
  6. ASCORBIC ACID TABLET [Concomitant]
     Dates: start: 20200711, end: 20200720
  7. ENOXAPARIN 40MG SQ Q24H [Concomitant]
     Dates: start: 20200710, end: 20200718
  8. ENOXAPARIN 60MG SQ Q12H [Concomitant]
     Dates: start: 20200718, end: 20200720
  9. FUROSEMIDE 40MG IVP [Concomitant]
     Dates: start: 20200719, end: 20200719
  10. INSULIN ASPART [Concomitant]
     Active Substance: INSULIN ASPART
     Dates: start: 20200710, end: 20200720
  11. AZITHROMYCIN ANHYDROUS. [Concomitant]
     Active Substance: AZITHROMYCIN ANHYDROUS
     Dates: start: 20200710, end: 20200713
  12. DOCUSATE [Concomitant]
     Active Substance: DOCUSATE
     Dates: start: 20200711, end: 20200720
  13. ONDANSETRON IVP [Concomitant]
     Dates: start: 20200710, end: 20200720
  14. NS FLUID [Concomitant]
     Dates: start: 20200710, end: 20200719
  15. POTASSIUM CHLORIDE IVPB [Concomitant]
     Dates: start: 20200714, end: 20200714
  16. ETOMIDATE IV [Concomitant]
     Dates: start: 20200718, end: 20200718
  17. CEFTRIAXONE. [Concomitant]
     Active Substance: CEFTRIAXONE
     Dates: start: 20200711, end: 20200720
  18. DEXAMETHASONE 6MG PO DAILY [Concomitant]
     Active Substance: DEXAMETHASONE
     Dates: start: 20200711, end: 20200720
  19. FUROSEMIDE 20MG IVP [Concomitant]
     Dates: start: 20200715, end: 20200715
  20. REMDESIVIR. [Suspect]
     Active Substance: REMDESIVIR
  21. HYDROXYCHLOROQUINE [Suspect]
     Active Substance: HYDROXYCHLOROQUINE
     Indication: COVID-19
     Route: 048
  22. SODIUM BICARBONATE LARGE VOLUME [Concomitant]
     Dates: start: 20200718, end: 20200720
  23. IVERMECTIN 12 PO X 1 [Concomitant]
     Dates: start: 20200715, end: 20200715

REACTIONS (3)
  - Blood alkaline phosphatase increased [None]
  - Aspartate aminotransferase increased [None]
  - Alanine aminotransferase increased [None]

NARRATIVE: CASE EVENT DATE: 20200719
